FAERS Safety Report 15047708 (Version 4)
Quarter: 2019Q1

REPORT INFORMATION
  Report Type: Spontaneous
  Country: FR (occurrence: FR)
  Receive Date: 20180621
  Receipt Date: 20190206
  Transmission Date: 20190417
  Serious: Yes (Hospitalization, Other)
  Sender: FDA-Public Use
  Company Number: FR-009507513-1806FRA006449

PATIENT
  Age: 60 Year
  Sex: Male

DRUGS (18)
  1. ZELITREX [Suspect]
     Active Substance: VALACYCLOVIR HYDROCHLORIDE
     Indication: ANTIVIRAL PROPHYLAXIS
     Dosage: 500 MILLIGRAM, DAILY
     Route: 048
     Dates: start: 20180411
  2. TRISENOX [Suspect]
     Active Substance: ARSENIC TRIOXIDE
     Dosage: 12.75 MG; J1 A J5/ CURE; CYCLICAL
     Route: 042
     Dates: start: 20180511, end: 20180515
  3. VESANOID [Suspect]
     Active Substance: TRETINOIN
     Dosage: 90 MILLIGRAM, DAILY
     Route: 048
     Dates: start: 20180509
  4. FLUCONAZOLE. [Suspect]
     Active Substance: FLUCONAZOLE
     Indication: PRODUCT USED FOR UNKNOWN INDICATION
     Dosage: 400 MILLIGRAM
     Route: 042
     Dates: start: 20180411
  5. AMLODIPINE [Suspect]
     Active Substance: AMLODIPINE BESYLATE
     Indication: HYPERTENSION
     Dosage: 10 MG, DAILY
     Route: 048
     Dates: start: 20180509
  6. CANCIDAS [Suspect]
     Active Substance: CASPOFUNGIN ACETATE
     Indication: FEBRILE BONE MARROW APLASIA
     Dosage: 70 MG, DAILY
     Route: 042
     Dates: start: 20180503
  7. CETIRIZINE HYDROCHLORIDE. [Suspect]
     Active Substance: CETIRIZINE HYDROCHLORIDE
     Indication: URTICARIA
     Dosage: 10 MG, DAILY
     Route: 048
     Dates: start: 20180414, end: 20180423
  8. TRISENOX [Suspect]
     Active Substance: ARSENIC TRIOXIDE
     Dosage: 12.75 MG; J1 A J5/ CURE; CYCLICAL
     Route: 042
     Dates: start: 20180411, end: 20180420
  9. ALPRAZOLAM. [Suspect]
     Active Substance: ALPRAZOLAM
     Indication: ANXIETY
     Dosage: 0.75 MG, QD (TABLET BREACKABLE)
     Route: 048
     Dates: start: 20180512
  10. BACTRIM [Suspect]
     Active Substance: SULFAMETHOXAZOLE\TRIMETHOPRIM
     Indication: PRODUCT USED FOR UNKNOWN INDICATION
     Dosage: UNK
     Dates: start: 20180411, end: 20180419
  11. HYDREA [Concomitant]
     Active Substance: HYDROXYUREA
     Dosage: 1-1-1 ON 21/APR/20182-2-2FROM 23/MAY/2018 TO 27/MAY/2018
     Route: 065
     Dates: start: 20180421, end: 20180427
  12. LINEZOLID. [Suspect]
     Active Substance: LINEZOLID
     Indication: FEBRILE BONE MARROW APLASIA
     Dosage: 600 MILLIGRAM, TWO TIMES A DAY, (12 HOURS)
     Route: 042
     Dates: start: 20180503, end: 20180517
  13. TRISENOX [Suspect]
     Active Substance: ARSENIC TRIOXIDE
     Indication: ACUTE MYELOID LEUKAEMIA
     Dosage: 12.75 MG; J1 A J5/ CURE; CYCLICAL
     Route: 042
     Dates: start: 20180522
  14. VESANOID [Suspect]
     Active Substance: TRETINOIN
     Indication: ACUTE MYELOID LEUKAEMIA
     Dosage: 90 MILLIGRAM, DAILY
     Route: 048
     Dates: start: 20180411, end: 20180420
  15. PANTOPRAZOLE [Suspect]
     Active Substance: PANTOPRAZOLE
     Indication: ABDOMINAL PAIN UPPER
     Dosage: 20 MG, DAILY
     Route: 048
     Dates: start: 20180424, end: 20180519
  16. TAZOCILLINE [Suspect]
     Active Substance: PIPERACILLIN SODIUM\TAZOBACTAM SODIUM
     Indication: FEBRILE BONE MARROW APLASIA
     Dosage: 16 GRAM, DAILY
     Route: 042
     Dates: start: 20180413
  17. ZOLPIDEM [Concomitant]
     Active Substance: ZOLPIDEM\ZOLPIDEM TARTRATE
     Dosage: 5 MILLIGRAM
     Route: 065
     Dates: start: 20180419
  18. TRISENOX [Suspect]
     Active Substance: ARSENIC TRIOXIDE
     Dosage: 12.75 MG; J1 A J5/ CURE; CYCLICAL
     Route: 042
     Dates: start: 20180518, end: 20180521

REACTIONS (6)
  - Hyperleukocytosis [Unknown]
  - Hypomagnesaemia [Unknown]
  - Differentiation syndrome [Unknown]
  - Urticaria [Unknown]
  - Electrocardiogram QT prolonged [Recovered/Resolved]
  - Hypokalaemia [Unknown]

NARRATIVE: CASE EVENT DATE: 20180420
